FAERS Safety Report 20569490 (Version 1)
Quarter: 2022Q1

REPORT INFORMATION
  Report Type: Report from Study
  Country: MX (occurrence: MX)
  Receive Date: 20220309
  Receipt Date: 20220309
  Transmission Date: 20220423
  Serious: Yes (Other)
  Sender: FDA-Public Use
  Company Number: MX-NOVARTISPH-NVSC2022MX032876

PATIENT
  Age: 57 Year
  Sex: Male

DRUGS (1)
  1. TASIGNA [Suspect]
     Active Substance: NILOTINIB
     Indication: Chronic myeloid leukaemia
     Dosage: 800 MG, QD (STARTED 4 YEARS AGO)
     Route: 048

REACTIONS (8)
  - Respiratory tract infection bacterial [Recovering/Resolving]
  - Dyspnoea [Unknown]
  - Toothache [Unknown]
  - Tooth disorder [Unknown]
  - Illness [Unknown]
  - Feeling abnormal [Unknown]
  - Pharyngitis [Unknown]
  - Inappropriate schedule of product administration [Unknown]

NARRATIVE: CASE EVENT DATE: 20210801
